FAERS Safety Report 4996678-4 (Version None)
Quarter: 2006Q2

REPORT INFORMATION
  Report Type: 
  Country: None (occurrence: None)
  Receive Date: 20060509
  Receipt Date: 20050830
  Transmission Date: 20061013
  Serious: Yes (Death, Hospitalization, Disabling)
  Sender: FDA-Public Use
  Company Number: US-MERCK-0508USA05001

PATIENT
  Age: 53 Year
  Sex: Male
  Weight: 61 kg

DRUGS (3)
  1. VIOXX [Suspect]
     Indication: INFLAMMATION
     Route: 048
     Dates: start: 20020208, end: 20030401
  2. VIOXX [Suspect]
     Indication: PAIN IN EXTREMITY
     Route: 048
     Dates: start: 20020208, end: 20030401
  3. PLAQUENIL [Concomitant]
     Route: 065

REACTIONS (12)
  - BACK PAIN [None]
  - CARDIAC DISORDER [None]
  - CARDIAC FAILURE CONGESTIVE [None]
  - CHEST PAIN [None]
  - HYPERSENSITIVITY [None]
  - LUNG ADENOCARCINOMA METASTATIC [None]
  - MYOCARDIAL INFARCTION [None]
  - NON-HODGKIN'S LYMPHOMA [None]
  - PULMONARY EMBOLISM [None]
  - SPINAL CORD COMPRESSION [None]
  - SYSTEMIC LUPUS ERYTHEMATOSUS [None]
  - WEIGHT DECREASED [None]
